FAERS Safety Report 14661810 (Version 1)
Quarter: 2018Q1

REPORT INFORMATION
  Report Type: Spontaneous
  Country: US (occurrence: US)
  Receive Date: 20180318
  Receipt Date: 20180318
  Transmission Date: 20180509
  Serious: Yes (Life-Threatening)
  Sender: FDA-Public Use
  Company Number: None

PATIENT
  Age: 25 Year
  Sex: Male
  Weight: 136.5 kg

DRUGS (1)
  1. KYMRIAH [Suspect]
     Active Substance: TISAGENLECLEUCEL
     Indication: ACUTE LYMPHOCYTIC LEUKAEMIA
     Dosage: 1.2 X 10^8 CAR + VIABLE T CELLS
     Route: 042
     Dates: start: 20171227

REACTIONS (2)
  - Histiocytic sarcoma [None]
  - Abdominal wall mass [None]

NARRATIVE: CASE EVENT DATE: 20180309
